FAERS Safety Report 17250639 (Version 1)
Quarter: 2020Q1

REPORT INFORMATION
  Report Type: Spontaneous
  Country: US (occurrence: US)
  Receive Date: 20200109
  Receipt Date: 20200109
  Transmission Date: 20200409
  Serious: Yes (Hospitalization, Disabling)
  Sender: FDA-Public Use
  Company Number: US-CELLTRION INC.-2019US023483

PATIENT

DRUGS (13)
  1. BACLOFEN. [Concomitant]
     Active Substance: BACLOFEN
     Indication: MUSCLE SPASMS
     Dosage: 10 MG, THREE TIMES A DAY
  2. TYLENOL [Concomitant]
     Active Substance: ACETAMINOPHEN
     Indication: ANKYLOSING SPONDYLITIS
     Dosage: UNK, LAST GIVEN AT 7:52AM
     Dates: end: 20191003
  3. INFLIXIMAB (UNKNOWN) [Suspect]
     Active Substance: INFLIXIMAB
     Indication: ANKYLOSING SPONDYLITIS
     Dosage: UNK, 1ST DOSE (GETS TWO IV INFUSIONS A MONTH AND THAT EACH TIME IT TAKES THREE HOURS)
     Route: 041
     Dates: start: 20190618
  4. PENICILLIN [BENZYLPENICILLIN] [Concomitant]
     Active Substance: PENICILLIN G
     Dosage: 500 MG (ANXIETY STOP THIS ONLY 3 PILLS LEFT)
  5. BENADRYL [Concomitant]
     Active Substance: DIPHENHYDRAMINE HYDROCHLORIDE
     Dosage: UNK, LAST GIVEN: 7:52AM
     Dates: end: 20191003
  6. FOLATE [Concomitant]
     Active Substance: FOLATE SODIUM
     Dosage: 1 TABLET {1 MG) ONCE DAILY (PRESCRIBED -19MAY2019; QUANTITY: 90 TABLETS)
     Route: 048
  7. BENADRYL [Concomitant]
     Active Substance: DIPHENHYDRAMINE HYDROCHLORIDE
     Indication: ANKYLOSING SPONDYLITIS
     Dosage: UNK, LAST GIVEN AT 1:22 PM
  8. TREXALL [Concomitant]
     Active Substance: METHOTREXATE SODIUM
     Indication: ANKYLOSING SPONDYLITIS
     Dosage: 6 TABLETS (15 MG) BY MOUTH ONCE A WEEK (PRESCRIBED: 19MAY2019; QUANTITY: 24 TABLETS)
     Route: 048
  9. SODIUM CHLORIDE. [Concomitant]
     Active Substance: SODIUM CHLORIDE
     Indication: ANKYLOSING SPONDYLITIS
     Dosage: SODIUM CHLORIDE FLUSH, UNK  LAST GIVEN: 8:00AM
  10. SODIUM CHLORIDE. [Concomitant]
     Active Substance: SODIUM CHLORIDE
     Indication: ARTHRITIS
  11. INFLIXIMAB (UNKNOWN) [Suspect]
     Active Substance: INFLIXIMAB
     Dosage: UNK (GETS TWO IV INFUSIONS A MONTH AND THAT EACH TIME IT TAKES THREE HOURS)
     Route: 041
     Dates: start: 20190711
  12. ZOLOFT [Concomitant]
     Active Substance: SERTRALINE HYDROCHLORIDE
     Dosage: 100 MG ONCE DAILY
     Dates: start: 20190212
  13. TYLENOL [Concomitant]
     Active Substance: ACETAMINOPHEN
     Dosage: UNK, LAST GIVEN AT 1 :22 PM
     Dates: end: 20191129

REACTIONS (5)
  - Therapeutic product effect incomplete [Unknown]
  - Condition aggravated [Not Recovered/Not Resolved]
  - Disability [Unknown]
  - Autoimmune disorder [Not Recovered/Not Resolved]
  - Eye disorder [Not Recovered/Not Resolved]

NARRATIVE: CASE EVENT DATE: 2018
